FAERS Safety Report 22597667 (Version 1)
Quarter: 2023Q2

REPORT INFORMATION
  Report Type: Report from Study
  Country: IN (occurrence: None)
  Receive Date: 20230614
  Receipt Date: 20230614
  Transmission Date: 20230722
  Serious: Yes (Other)
  Sender: FDA-Public Use
  Company Number: 2023A134883

PATIENT
  Sex: Female

DRUGS (1)
  1. LYNPARZA [Suspect]
     Active Substance: OLAPARIB
     Indication: Breast cancer female
     Dosage: UNKNOWN
     Route: 048

REACTIONS (5)
  - Lower limb fracture [Unknown]
  - Pain in extremity [Unknown]
  - Nausea [Unknown]
  - Asthenia [Unknown]
  - Abdominal pain upper [Unknown]
